FAERS Safety Report 17560945 (Version 1)
Quarter: 2020Q1

REPORT INFORMATION
  Report Type: Spontaneous
  Country: US (occurrence: US)
  Receive Date: 20200312
  Receipt Date: 20200312
  Transmission Date: 20200409
  Serious: Yes (Hospitalization)
  Sender: FDA-Public Use
  Company Number: None

PATIENT
  Age: 70 Year
  Sex: Male
  Weight: 92 kg

DRUGS (1)
  1. NAPROXEN (NAPROXEN NA 220MG TAB) [Suspect]
     Active Substance: NAPROXEN
     Indication: PAIN
     Route: 048
     Dates: end: 20191205

REACTIONS (3)
  - Abdominal pain upper [None]
  - Acute kidney injury [None]
  - Product use issue [None]

NARRATIVE: CASE EVENT DATE: 20191205
